FAERS Safety Report 5231162-4 (Version None)
Quarter: 2007Q1

REPORT INFORMATION
  Report Type: 
  Country: None (occurrence: None)
  Receive Date: 20070205
  Receipt Date: 20070205
  Transmission Date: 20070707
  Serious: Yes (Other)
  Sender: FDA-Public Use
  Company Number: None

PATIENT
  Age: 14 Year
  Sex: Female

DRUGS (1)
  1. CORICIDIN [Suspect]
     Dosage: 19 TABLETS
     Dates: start: 20070131, end: 20070131

REACTIONS (9)
  - BLOOD PRESSURE INCREASED [None]
  - DRUG ABUSER [None]
  - GAIT DISTURBANCE [None]
  - HEART RATE ABNORMAL [None]
  - INCOHERENT [None]
  - INCORRECT DOSE ADMINISTERED [None]
  - INTENTIONAL DRUG MISUSE [None]
  - OCULAR HYPERAEMIA [None]
  - SPEECH DISORDER [None]
